FAERS Safety Report 4464336-0 (Version None)
Quarter: 2004Q4

REPORT INFORMATION
  Report Type: 
  Country: None (occurrence: None)
  Receive Date: 20041001
  Receipt Date: 20040927
  Transmission Date: 20050328
  Serious: Yes (Other)
  Sender: FDA-Public Use
  Company Number: US-MERCK-0409USA02275

PATIENT
  Age: 75 Year
  Sex: Male

DRUGS (2)
  1. DIAZEPAM [Concomitant]
     Route: 065
  2. ZOCOR [Suspect]
     Route: 048

REACTIONS (3)
  - CONTUSION [None]
  - FALL [None]
  - MYALGIA [None]
